FAERS Safety Report 6908140-X (Version None)
Quarter: 2010Q3

REPORT INFORMATION
  Report Type: 
  Country: None (occurrence: None)
  Receive Date: 20100708
  Receipt Date: 20090320
  Transmission Date: 20110219
  Serious: Yes (Other)
  Sender: FDA-Public Use
  Company Number: 2009175039

PATIENT
  Sex: Male

DRUGS (5)
  1. CHANTIX [Suspect]
     Dates: start: 20080601, end: 20080101
  2. SYMBICORT [Concomitant]
  3. SPIRIVA [Concomitant]
  4. MULTIVITAMINS W/MINTERALS (MINERALS NOS, VITAMINS NOS) [Concomitant]
  5. VIAGRA [Concomitant]

REACTIONS (4)
  - ABNORMAL BEHAVIOUR [None]
  - AGGRESSION [None]
  - DEPRESSION [None]
  - INSOMNIA [None]
